FAERS Safety Report 9380135 (Version 1)
Quarter: 2013Q3

REPORT INFORMATION
  Report Type: Spontaneous
  Country: NL (occurrence: NL)
  Receive Date: 20130702
  Receipt Date: 20130702
  Transmission Date: 20140515
  Serious: Yes (Life-Threatening)
  Sender: FDA-Public Use
  Company Number: PHHY2013NL067384

PATIENT
  Sex: Male

DRUGS (2)
  1. DICLOFENAC POTASSIUM [Suspect]
     Indication: ARTHRALGIA
     Dosage: 2 DF, QD
     Dates: start: 20130609
  2. OMEPRAZOLE [Concomitant]
     Dosage: 20 MG, QD
     Dates: start: 20130609, end: 20130619

REACTIONS (5)
  - Anaphylactic reaction [Recovered/Resolved]
  - Anaphylactic shock [Recovered/Resolved]
  - Pruritus [Unknown]
  - Blood pressure decreased [Unknown]
  - Rash erythematous [Unknown]
